FAERS Safety Report 7955633-2 (Version None)
Quarter: 2011Q4

REPORT INFORMATION
  Report Type: 
  Country: None (occurrence: None)
  Receive Date: 20111204
  Receipt Date: 20111124
  Transmission Date: 20120403
  Serious: Yes (Other)
  Sender: FDA-Public Use
  Company Number: CN-AMGEN-CHNSP2011062853

PATIENT
  Age: 49 Year
  Sex: Female

DRUGS (3)
  1. METHOTREXATE [Concomitant]
     Dosage: 7.5 MG, WEEKLY
     Route: 048
     Dates: start: 20111114, end: 20111124
  2. ENBREL [Suspect]
     Indication: RHEUMATOID ARTHRITIS
     Dosage: 50 MG, WEEKLY
     Dates: start: 20111114, end: 20111124
  3. FOLIC ACID [Concomitant]
     Indication: PRODUCT USED FOR UNKNOWN INDICATION
     Dosage: UNK
     Route: 048
     Dates: start: 20111114, end: 20111124

REACTIONS (4)
  - POSTMENOPAUSAL HAEMORRHAGE [None]
  - BREAST PAIN [None]
  - VULVOVAGINAL PAIN [None]
  - DIARRHOEA [None]
